FAERS Safety Report 8156253-X (Version None)
Quarter: 2012Q1

REPORT INFORMATION
  Report Type: 
  Country: None (occurrence: None)
  Receive Date: 20120103
  Receipt Date: 20110826
  Transmission Date: 20120608
  Serious: No
  Sender: FDA-Public Use
  Company Number: AE-2011-000742

PATIENT
  Age: 53 Year
  Sex: Female
  Weight: 83.9154 kg

DRUGS (2)
  1. NORVASC [Concomitant]
  2. INCIVEK [Suspect]
     Dosage: 2250 MG (750 MG, 1 IN 8 HR)
     Dates: start: 20110729

REACTIONS (4)
  - OEDEMA PERIPHERAL [None]
  - RASH MACULAR [None]
  - DRUG ADMINISTRATION ERROR [None]
  - ANORECTAL DISCOMFORT [None]
